FAERS Safety Report 23644400 (Version 1)
Quarter: 2024Q1

REPORT INFORMATION
  Report Type: Spontaneous
  Country: CN (occurrence: CN)
  Receive Date: 20240318
  Receipt Date: 20240318
  Transmission Date: 20240410
  Serious: Yes (Hospitalization)
  Sender: FDA-Public Use
  Company Number: None

PATIENT
  Age: 37 Year
  Sex: Female
  Weight: 48 kg

DRUGS (4)
  1. CYCLOPHOSPHAMIDE [Suspect]
     Active Substance: CYCLOPHOSPHAMIDE
     Indication: Breast cancer female
     Dosage: 0.7 G, ONE TIME IN ONE DAY (ONCE FOR 2 HOURS), DILUTED WITH 500 ML OF 0.9% SODIUM CHLORIDE, FIRST PO
     Route: 041
     Dates: start: 20240221, end: 20240221
  2. DOCETAXEL [Suspect]
     Active Substance: DOCETAXEL\DOCETAXEL ANHYDROUS
     Indication: Breast cancer female
     Dosage: 100 MG, ONE TIME IN ONE DAY (ONCE FOR 2 HOURS), DILUTED WITH 500 ML OF 5% GLUCOSE, FIRST POSTOPERATI
     Route: 041
     Dates: start: 20240221, end: 20240221
  3. SODIUM CHLORIDE [Suspect]
     Active Substance: SODIUM CHLORIDE
     Indication: Medication dilution
     Dosage: 500 ML, ONE TIME IN ONE DAY (ONCE FOR 2 HOURS), USED TO DILUTE 0.7 G OF CYCLOPHOSPHAMIDE, FIRST POST
     Route: 041
     Dates: start: 20240221, end: 20240221
  4. DEXTROSE [Suspect]
     Active Substance: DEXTROSE\DEXTROSE MONOHYDRATE
     Indication: Medication dilution
     Dosage: 500 ML, ONE TIME IN ONE DAY (ONCE FOR 2 HOURS), USED TO DILUTE 100 MG DOCETAXEL, FIRST POSTOPERATIVE
     Route: 041
     Dates: start: 20240221, end: 20240221

REACTIONS (3)
  - Toothache [Unknown]
  - White blood cell count decreased [Recovering/Resolving]
  - Neutrophil count decreased [Recovering/Resolving]

NARRATIVE: CASE EVENT DATE: 20240229
